FAERS Safety Report 25079492 (Version 2)
Quarter: 2025Q2

REPORT INFORMATION
  Report Type: Spontaneous
  Country: LV (occurrence: LV)
  Receive Date: 20250314
  Receipt Date: 20250424
  Transmission Date: 20250716
  Serious: Yes (Other)
  Sender: PFIZER
  Company Number: LV-PFIZER INC-PV202500030817

PATIENT
  Age: 53 Year
  Sex: Female
  Weight: 60 kg

DRUGS (3)
  1. LORLATINIB [Suspect]
     Active Substance: LORLATINIB
     Indication: Lung adenocarcinoma stage IV
     Dosage: 100 MG, 1X/DAY
     Route: 048
     Dates: start: 20221102, end: 2024
  2. CARBOPLATIN/PEMETREXED [Concomitant]
     Indication: Lung adenocarcinoma stage IV
     Dates: start: 20241220
  3. CARBOPLATIN/DOXORUBICIN [Concomitant]
     Indication: Lung adenocarcinoma stage IV

REACTIONS (7)
  - Metastases to liver [Recovered/Resolved with Sequelae]
  - Metastases to lung [Recovered/Resolved with Sequelae]
  - Malignant neoplasm progression [Recovered/Resolved with Sequelae]
  - Blood cholesterol increased [Recovered/Resolved with Sequelae]
  - High density lipoprotein increased [Recovered/Resolved with Sequelae]
  - Non-high-density lipoprotein cholesterol increased [Recovered/Resolved with Sequelae]
  - Low density lipoprotein increased [Recovered/Resolved with Sequelae]

NARRATIVE: CASE EVENT DATE: 20230714
